FAERS Safety Report 8209092-5 (Version None)
Quarter: 2012Q1

REPORT INFORMATION
  Report Type: 
  Country: None (occurrence: None)
  Receive Date: 20120314
  Receipt Date: 20120308
  Transmission Date: 20120608
  Serious: Yes (Life-Threatening)
  Sender: FDA-Public Use
  Company Number: GB-JNJFOC-20120305422

PATIENT
  Age: 61 Year
  Sex: Male

DRUGS (7)
  1. AMOXICILLIN AND CLAVULANATE POTASSIUM [Concomitant]
  2. CODEINE PHOSPHATE [Concomitant]
  3. LACTULOSE [Concomitant]
  4. WARFARIN SODIUM [Concomitant]
  5. DICLOFENAC SODIUM [Concomitant]
  6. RIVAROXABAN [Suspect]
     Indication: PRODUCT USED FOR UNKNOWN INDICATION
     Route: 048
     Dates: start: 20120116
  7. ACETAMINOPHEN [Concomitant]

REACTIONS (1)
  - PULMONARY EMBOLISM [None]
